FAERS Safety Report 8585376-6 (Version None)
Quarter: 2012Q3

REPORT INFORMATION
  Report Type: 
  Country: None (occurrence: None)
  Receive Date: 20120810
  Receipt Date: 20120725
  Transmission Date: 20120928
  Serious: Yes (Other)
  Sender: FDA-Public Use
  Company Number: IN-US-EMD SERONO, INC.-7099794

PATIENT
  Age: 34 Year
  Sex: Female
  Weight: 53 kg

DRUGS (1)
  1. GONAL-F [Suspect]
     Indication: IN VITRO FERTILISATION
     Dates: start: 20110118, end: 20110127

REACTIONS (1)
  - ABORTION MISSED [None]
